FAERS Safety Report 10880364 (Version 1)
Quarter: 2015Q1

REPORT INFORMATION
  Report Type: Spontaneous
  Country: US (occurrence: US)
  Receive Date: 20150302
  Receipt Date: 20150302
  Transmission Date: 20150721
  Serious: Yes (Life-Threatening, Other)
  Sender: FDA-Public Use
  Company Number: PHHY2015US021678

PATIENT
  Age: 50 Year
  Sex: Female

DRUGS (3)
  1. CALCITONIN, SALMON [Suspect]
     Active Substance: CALCITONIN SALMON
     Indication: HYPERCALCAEMIA
     Route: 065
  2. PAMIDRONATE [Suspect]
     Active Substance: PAMIDRONATE DISODIUM
     Indication: HYPERCALCAEMIA
     Route: 065
  3. FUROSEMIDE. [Suspect]
     Active Substance: FUROSEMIDE
     Indication: ACUTE KIDNEY INJURY
     Route: 065

REACTIONS (4)
  - Haemodialysis [None]
  - Blood parathyroid hormone increased [None]
  - Acute kidney injury [Unknown]
  - Hypercalcaemia [Unknown]
